FAERS Safety Report 8882385 (Version 1)
Quarter: 2012Q4

REPORT INFORMATION
  Report Type: 
  Country: US (occurrence: US)
  Receive Date: 20121102
  Receipt Date: 20121102
  Transmission Date: 20130627
  Serious: Yes (Hospitalization)
  Sender: FDA-Public Use
  Company Number: US-ASTRAZENECA-2012SE81872

PATIENT
  Age: 64 Year
  Sex: Male
  Weight: 88 kg

DRUGS (8)
  1. LISINOPRIL [Suspect]
     Route: 048
  2. METOPROLOL [Suspect]
     Route: 048
  3. CRESTOR [Suspect]
     Route: 048
  4. CRESTOR [Suspect]
     Route: 048
  5. BABY ASA [Concomitant]
  6. GLIMEPIRIDE [Concomitant]
  7. MULTIVITAMIN [Concomitant]
  8. LASIX [Concomitant]

REACTIONS (4)
  - Chest pain [Recovered/Resolved]
  - Hypertension [Unknown]
  - Hyperlipidaemia [Unknown]
  - Low density lipoprotein increased [Unknown]
